FAERS Safety Report 13209246 (Version 2)
Quarter: 2017Q1

REPORT INFORMATION
  Report Type: Spontaneous
  Country: US (occurrence: US)
  Receive Date: 20170209
  Receipt Date: 20170309
  Transmission Date: 20170428
  Serious: Yes (Hospitalization, Other)
  Sender: FDA-Public Use
  Company Number: US-TEVA-738041USA

PATIENT
  Age: 45 Year
  Sex: Female

DRUGS (1)
  1. AMOXICILLIN W/CLAVULANIC ACID [Suspect]
     Active Substance: AMOXICILLIN\CLAVULANIC ACID
     Indication: TOOTHACHE
     Route: 065
     Dates: start: 20160202, end: 20160212

REACTIONS (10)
  - Acute hepatic failure [Unknown]
  - Dizziness [Unknown]
  - Face injury [Unknown]
  - Jaundice [Unknown]
  - Fluid retention [Unknown]
  - Hepatic cirrhosis [Unknown]
  - Swelling [Unknown]
  - Loss of consciousness [Unknown]
  - Seizure [Unknown]
  - Hospitalisation [Unknown]

NARRATIVE: CASE EVENT DATE: 20160808
